FAERS Safety Report 11099058 (Version 1)
Quarter: 2015Q2

REPORT INFORMATION
  Report Type: Spontaneous
  Country: AU (occurrence: AU)
  Receive Date: 20150508
  Receipt Date: 20150508
  Transmission Date: 20150821
  Serious: Yes (Life-Threatening, Hospitalization)
  Sender: FDA-Public Use
  Company Number: AU-009507513-1505AUS001401

PATIENT
  Age: 77 Year
  Sex: Male

DRUGS (6)
  1. HYDROCHLOROTHIAZIDE. [Suspect]
     Active Substance: HYDROCHLOROTHIAZIDE
     Dosage: BETWEEN MEALS
     Route: 048
  2. OCTREOTIDE [Suspect]
     Active Substance: OCTREOTIDE
     Dosage: 20 MG, QM, THEN TITRATED TO LONG-ACTING RELEASE (LAR) OCTREOTIDE 20MG MONTHLY.
     Route: 058
  3. DIAZOXIDE [Suspect]
     Active Substance: DIAZOXIDE
     Dosage: BETWEEN MEALS
     Route: 048
  4. OCTREOTIDE [Suspect]
     Active Substance: OCTREOTIDE
     Dosage: TITRATED TO LONG-ACTING RELEASE (LAR) OCTREOTIDE 30 MG MONTHLY, UNK
     Route: 058
  5. DEXAMETHASONE. [Suspect]
     Active Substance: DEXAMETHASONE
     Dosage: BETWEEN MEALS
     Route: 048
  6. OCTREOTIDE [Suspect]
     Active Substance: OCTREOTIDE
     Dosage: 20 MG, QM
     Route: 058

REACTIONS (5)
  - Hypoglycaemia [Unknown]
  - Weight increased [Unknown]
  - Fluid overload [Unknown]
  - Hypoglycaemic unconsciousness [Unknown]
  - Hyponatraemia [Unknown]
